FAERS Safety Report 6883352-2 (Version None)
Quarter: 2010Q3

REPORT INFORMATION
  Report Type: 
  Country: None (occurrence: None)
  Receive Date: 20100727
  Receipt Date: 20070808
  Transmission Date: 20110219
  Serious: Yes (Hospitalization, Other)
  Sender: FDA-Public Use
  Company Number: US-PFIZER INC-2007027879

PATIENT
  Sex: Female
  Weight: 79.8 kg

DRUGS (1)
  1. CELEBREX [Suspect]
     Indication: PAIN
     Dates: end: 19990101

REACTIONS (2)
  - CEREBROVASCULAR ACCIDENT [None]
  - CEREBROVASCULAR DISORDER [None]
